FAERS Safety Report 8231612-5 (Version None)
Quarter: 2012Q1

REPORT INFORMATION
  Report Type: 
  Country: None (occurrence: None)
  Receive Date: 20120323
  Receipt Date: 20120313
  Transmission Date: 20120608
  Serious: Yes (Hospitalization)
  Sender: FDA-Public Use
  Company Number: CA-ELI_LILLY_AND_COMPANY-CA201203003900

PATIENT
  Age: 65 Year
  Sex: Female

DRUGS (10)
  1. NAPROXEN (ALEVE) [Concomitant]
     Dosage: UNK, PRN
  2. FORTEO [Suspect]
     Dosage: 20 UG, QD
     Route: 058
     Dates: start: 20110226
  3. CARBOCAL D [Concomitant]
  4. EMTEC [Concomitant]
     Indication: PAIN
  5. IBUPROFEN (ADVIL) [Concomitant]
     Dosage: UNK, PRN
  6. ADALAT CC [Concomitant]
  7. CLONAZEPAM [Concomitant]
     Dosage: UNK, PRN
  8. FORTEO [Suspect]
     Indication: OSTEOPOROSIS
     Dosage: 20 UG, QD
     Route: 058
     Dates: start: 20100920, end: 20110219
  9. VALSARTAN [Concomitant]
  10. SYNTHROID [Concomitant]

REACTIONS (2)
  - HOSPITALISATION [None]
  - FALL [None]
